FAERS Safety Report 6971183-4 (Version None)
Quarter: 2010Q3

REPORT INFORMATION
  Report Type: 
  Country: None (occurrence: None)
  Receive Date: 20100908
  Receipt Date: 20100827
  Transmission Date: 20110219
  Serious: Yes (Hospitalization)
  Sender: FDA-Public Use
  Company Number: US-MYLANLABS-2010S1015913

PATIENT
  Age: 64 Year
  Sex: Female

DRUGS (1)
  1. AMNESTEEM [Suspect]
     Route: 048

REACTIONS (1)
  - ARTHRITIS INFECTIVE [None]
